FAERS Safety Report 5604399-X (Version None)
Quarter: 2008Q1

REPORT INFORMATION
  Report Type: 
  Country: None (occurrence: None)
  Receive Date: 20080128
  Receipt Date: 20080117
  Transmission Date: 20080703
  Serious: Yes (Hospitalization)
  Sender: FDA-Public Use
  Company Number: US-JNJFOC-20080104744

PATIENT
  Sex: Female
  Weight: 109.77 kg

DRUGS (2)
  1. FENTANYL TRANSDERMAL SYSTEM [Suspect]
     Indication: PAIN
     Route: 062
  2. FENTANYL TRANSDERMAL SYSTEM [Suspect]
     Indication: PAIN
     Route: 062

REACTIONS (6)
  - ARTHRALGIA [None]
  - BREAST CANCER [None]
  - DEVICE LEAKAGE [None]
  - DRUG ADMINISTRATION ERROR [None]
  - RESPIRATORY ARREST [None]
  - WRONG TECHNIQUE IN DRUG USAGE PROCESS [None]
